FAERS Safety Report 6615556-8 (Version None)
Quarter: 2010Q1

REPORT INFORMATION
  Report Type: 
  Country: None (occurrence: None)
  Receive Date: 20100301
  Receipt Date: 20100224
  Transmission Date: 20100710
  Serious: Yes (Death)
  Sender: FDA-Public Use
  Company Number: 210SP011024

PATIENT
  Age: 33 Year
  Sex: Female

DRUGS (6)
  1. POSACONAZOLE [Suspect]
     Indication: ANTIFUNGAL PROPHYLAXIS
     Dosage: 600 MG;PO
     Route: 048
     Dates: start: 20090917, end: 20090929
  2. ATRACURIUM BESYLATE [Suspect]
     Indication: ACUTE PROMYELOCYTIC LEUKAEMIA
     Dosage: 80 MG; PO
     Route: 048
     Dates: start: 20090917, end: 20091002
  3. IDARUBICIN HCL [Concomitant]
  4. MEROPENEM [Concomitant]
  5. TEICOPLANIN [Concomitant]
  6. FLUCONAZOLE [Concomitant]

REACTIONS (9)
  - ABDOMINAL PAIN [None]
  - DIARRHOEA [None]
  - DRUG INTERACTION [None]
  - ENTEROBACTER INFECTION [None]
  - GASTROINTESTINAL TOXICITY [None]
  - HEPATOTOXICITY [None]
  - HYPERBILIRUBINAEMIA [None]
  - MULTI-ORGAN FAILURE [None]
  - SEPTIC SHOCK [None]
